FAERS Safety Report 13436867 (Version 3)
Quarter: 2017Q3

REPORT INFORMATION
  Report Type: Report from Study
  Country: US (occurrence: US)
  Receive Date: 20170413
  Receipt Date: 20170710
  Transmission Date: 20171127
  Serious: Yes (Death, Hospitalization)
  Sender: FDA-Public Use
  Company Number: US-VIFOR (INTERNATIONAL) INC.-VIT-2017-03893

PATIENT
  Age: 82 Year
  Sex: Male

DRUGS (14)
  1. LEVOTHYROXINE SODIUM. [Concomitant]
     Active Substance: LEVOTHYROXINE SODIUM
  2. ATROPINE SULFATE/DIPHENOXYLATE [Concomitant]
  3. LANTUS [Concomitant]
     Active Substance: INSULIN GLARGINE
  4. LISINOPRIL. [Concomitant]
     Active Substance: LISINOPRIL
  5. LYRICA [Concomitant]
     Active Substance: PREGABALIN
  6. PARACETAMOL [Concomitant]
     Active Substance: ACETAMINOPHEN
  7. COREG CR [Concomitant]
     Active Substance: CARVEDILOL PHOSPHATE
  8. CREON [Concomitant]
     Active Substance: PANCRELIPASE AMYLASE\PANCRELIPASE LIPASE\PANCRELIPASE PROTEASE
  9. FUROSEMIDE. [Concomitant]
     Active Substance: FUROSEMIDE
  10. MAGNESIUM [Concomitant]
     Active Substance: MAGNESIUM
  11. VELTASSA [Suspect]
     Active Substance: PATIROMER
     Indication: HYPERKALAEMIA
     Dates: start: 20170406, end: 20170628
  12. NEXIUM [Concomitant]
     Active Substance: ESOMEPRAZOLE MAGNESIUM
  13. JANUMET [Concomitant]
     Active Substance: METFORMIN HYDROCHLORIDE\SITAGLIPTIN PHOSPHATE
  14. LIPITOR [Concomitant]
     Active Substance: ATORVASTATIN CALCIUM

REACTIONS (2)
  - Death [Fatal]
  - Cardiac arrest [Unknown]

NARRATIVE: CASE EVENT DATE: 2017
